FAERS Safety Report 6007313-0 (Version None)
Quarter: 2008Q4

REPORT INFORMATION
  Report Type: 
  Country: None (occurrence: None)
  Receive Date: 20081217
  Receipt Date: 20080327
  Transmission Date: 20090506
  Serious: No
  Sender: FDA-Public Use
  Company Number: US-ASTRAZENECA-2008UW04488

PATIENT
  Age: 75 Year
  Sex: Female
  Weight: 81.6 kg

DRUGS (5)
  1. CRESTOR [Suspect]
     Indication: BLOOD CHOLESTEROL INCREASED
     Route: 048
     Dates: start: 20080229
  2. AVAPRO [Concomitant]
  3. PRILOSEC [Concomitant]
     Route: 048
  4. NORVASC [Concomitant]
  5. ZEBETA [Concomitant]
     Dates: start: 20080201

REACTIONS (1)
  - DIARRHOEA [None]
